FAERS Safety Report 7672867-5 (Version None)
Quarter: 2011Q3

REPORT INFORMATION
  Report Type: 
  Country: None (occurrence: None)
  Receive Date: 20110809
  Receipt Date: 20110622
  Transmission Date: 20111222
  Serious: Yes (Other)
  Sender: FDA-Public Use
  Company Number: PHHY2011AU56349

PATIENT
  Age: 20 Year
  Sex: Male

DRUGS (3)
  1. METHYLPHENIDATE [Suspect]
     Dosage: UNK UKN, UNK
  2. OXYCODONE HCL [Suspect]
     Dosage: UNK UKN, UNK
  3. ZOLPIDEM [Suspect]
     Dosage: UNK UKN, UNK

REACTIONS (2)
  - INTENTIONAL DRUG MISUSE [None]
  - ANXIETY [None]
